FAERS Safety Report 9173904 (Version 1)
Quarter: 2013Q1

REPORT INFORMATION
  Report Type: Spontaneous
  Country: US (occurrence: None)
  Receive Date: 20130318
  Receipt Date: 20130318
  Transmission Date: 20140127
  Serious: Yes (Other)
  Sender: FDA-Public Use
  Company Number: 2013HINLIT0044

PATIENT
  Age: 66 Year
  Sex: Female

DRUGS (1)
  1. LITHIUM (LITHIUM) UNKNOWN [Suspect]
     Indication: PRODUCT USED FOR UNKNOWN INDICATION

REACTIONS (2)
  - Nephropathy [None]
  - Renal failure chronic [None]
